FAERS Safety Report 7385098-3 (Version None)
Quarter: 2011Q1

REPORT INFORMATION
  Report Type: 
  Country: None (occurrence: None)
  Receive Date: 20110330
  Receipt Date: 20081103
  Transmission Date: 20110831
  Serious: Yes (Death, Hospitalization, Other)
  Sender: FDA-Public Use
  Company Number: US-BAYER-200837573NA

PATIENT
  Sex: Female
  Weight: 86.168 kg

DRUGS (36)
  1. DITROPAN [Concomitant]
     Dosage: LONG TERM USE
     Route: 048
  2. LIDOCAINE [Concomitant]
     Dosage: 160 MG, UNK
     Route: 042
     Dates: start: 20061101, end: 20061101
  3. NITROGLYCERIN [Concomitant]
     Dosage: 5 MCG/KG
     Route: 042
     Dates: start: 20061101, end: 20061101
  4. POTASSIUM [POTASSIUM] [Concomitant]
     Dosage: 40 MG, UNK
     Route: 048
  5. LASIX [Concomitant]
     Dosage: 40 MG, UNK
     Route: 048
  6. LIPITOR [Concomitant]
     Dosage: 40 MG, UNK
     Route: 048
  7. CARDIOPLEGIA [Concomitant]
     Dosage: 1000 ML, UNK
     Route: 042
     Dates: start: 20061101, end: 20061101
  8. HEPARIN SODIUM [Concomitant]
     Dosage: 4 U, UNK
     Route: 042
     Dates: start: 20061101, end: 20061101
  9. LABETALOL [Concomitant]
     Dosage: 10 MG, UNK
     Route: 042
     Dates: start: 20061101, end: 20061101
  10. AMRINONE [Concomitant]
     Dosage: UNK
     Dates: start: 20061101, end: 20061101
  11. CAPTOPRIL [Concomitant]
     Dosage: LONG TERM USE
     Route: 048
  12. THROMBIN LOCAL SOLUTION [Concomitant]
     Dosage: 5000 U, UNK
     Route: 042
     Dates: start: 20061101, end: 20061101
  13. ARICEPT [Concomitant]
     Dosage: 10 MG, UNK
     Route: 048
  14. AMICAR [Concomitant]
     Dosage: 10 G, UNK
     Route: 042
     Dates: start: 20061101, end: 20061101
  15. VERSED [Concomitant]
     Dosage: UNK
     Route: 042
     Dates: start: 20061101, end: 20061101
  16. PROPOFOL [Concomitant]
     Dosage: 100
     Route: 042
     Dates: start: 20061101, end: 20061101
  17. FORANE [Concomitant]
     Dosage: INHALATION
     Dates: start: 20061101, end: 20061101
  18. RED BLOOD CELLS [Concomitant]
     Dosage: UNK
     Route: 042
     Dates: start: 20061104
  19. LEVOPHED [Concomitant]
     Dosage: UNK
     Route: 042
     Dates: start: 20061104
  20. ACETYLSALICYLIC ACID SRT [Concomitant]
     Dosage: 81 MG, UNK
     Route: 048
  21. AMRINONE [Concomitant]
     Dosage: UNK
     Route: 042
     Dates: start: 20061104
  22. AMIODARONE HCL [Concomitant]
     Dosage: UNK
     Route: 042
     Dates: start: 20061101
  23. AMIODARONE HCL [Concomitant]
     Dosage: UNK
     Route: 042
     Dates: start: 20061104
  24. LASIX [Concomitant]
     Dosage: 20 MG, UNK
     Route: 042
     Dates: start: 20061101, end: 20061101
  25. METOPROLOL TARTRATE [Concomitant]
     Dosage: 25 MG, UNK
     Route: 048
  26. ATARAX [ALPRAZOLAM] [Concomitant]
     Dosage: LONG TERM USE
     Route: 048
  27. ESZOPICLONE [Concomitant]
     Dosage: LONG TERM USE
     Route: 048
  28. MANNITOL [Concomitant]
     Dosage: 200 ML, UNK
     Route: 042
     Dates: start: 20061101, end: 20061101
  29. TRASYLOL [Suspect]
     Indication: AORTIC VALVE REPLACEMENT
     Route: 042
     Dates: start: 20061101
  30. DARVOCET [Concomitant]
     Dosage: LONG TERM USE
     Route: 048
  31. CEFAZOLIN [Concomitant]
     Dosage: 3 G, UNK
     Route: 042
     Dates: start: 20061101, end: 20061101
  32. CALCIUM CHLORIDE [Concomitant]
     Dosage: 2 G, UNK
     Route: 042
     Dates: start: 20061101, end: 20061101
  33. FLUOXETINE [Concomitant]
     Dosage: 20 MG, UNK
     Route: 048
  34. NORVASC [Concomitant]
     Dosage: 5 MG, UNK
     Route: 048
  35. NORMOSOL [Concomitant]
     Dosage: 2000 ML, UNK
     Route: 042
     Dates: start: 20061101, end: 20061101
  36. EPINEPHRINE [Concomitant]
     Dosage: UNK
     Route: 042
     Dates: start: 20061104

REACTIONS (7)
  - RENAL FAILURE [None]
  - UNEVALUABLE EVENT [None]
  - ANXIETY [None]
  - EMOTIONAL DISTRESS [None]
  - MULTI-ORGAN FAILURE [None]
  - INJURY [None]
  - PAIN [None]
